FAERS Safety Report 4963200-8 (Version None)
Quarter: 2006Q2

REPORT INFORMATION
  Report Type: 
  Country: None (occurrence: None)
  Receive Date: 20060405
  Receipt Date: 20060321
  Transmission Date: 20061013
  Serious: Yes (Hospitalization)
  Sender: FDA-Public Use
  Company Number: FR-AVENTIS-200611102FR

PATIENT

DRUGS (1)
  1. TENUATE DOSPAN [Suspect]

REACTIONS (1)
  - PULMONARY HYPERTENSION [None]
